FAERS Safety Report 4688502-4 (Version None)
Quarter: 2005Q2

REPORT INFORMATION
  Report Type: 
  Country: None (occurrence: None)
  Receive Date: 20050613
  Receipt Date: 20050602
  Transmission Date: 20051028
  Serious: Yes (Hospitalization, Other)
  Sender: FDA-Public Use
  Company Number: US-JNJFOC-20050503609

PATIENT
  Sex: Female
  Weight: 68.04 kg

DRUGS (9)
  1. REMICADE [Suspect]
     Indication: RHEUMATOID ARTHRITIS
     Route: 042
  2. MTX [Concomitant]
  3. PREDNISONE TAB [Concomitant]
  4. PROTONIX [Concomitant]
  5. FOSAMAX [Concomitant]
  6. VERAPAMIL [Concomitant]
  7. BENICAL [Concomitant]
  8. BENICAL [Concomitant]
  9. BENICAL [Concomitant]
     Dosage: 20/125

REACTIONS (2)
  - IMPLANT SITE INFECTION [None]
  - LISTERIOSIS [None]
